FAERS Safety Report 18379243 (Version 4)
Quarter: 2020Q4

REPORT INFORMATION
  Report Type: Spontaneous
  Country: CZ (occurrence: CZ)
  Receive Date: 20201013
  Receipt Date: 20201209
  Transmission Date: 20210114
  Serious: Yes (Other)
  Sender: FDA-Public Use
  Company Number: CZ-MYLANLABS-2020M1086185

PATIENT
  Age: 60 Year
  Sex: Male

DRUGS (21)
  1. OXALIPLATIN. [Suspect]
     Active Substance: OXALIPLATIN
     Indication: ADENOCARCINOMA OF COLON
     Dosage: AFTER 34 CYCLES REDUCED TO 50% AND AFTER 36 CYCLES COMPLETELY DISCONTINUED
  2. OXALIPLATIN. [Suspect]
     Active Substance: OXALIPLATIN
     Dosage: UNK
     Route: 065
  3. CALCIUM FOLINATE [Suspect]
     Active Substance: LEUCOVORIN CALCIUM
     Indication: RECTAL ADENOCARCINOMA
     Dosage: 41 CYCLICAL
  4. FOLINIC ACID [Suspect]
     Active Substance: LEUCOVORIN
     Indication: RECTOSIGMOID CANCER
     Dosage: UNK (END DATE - AFTER 41 CYCLES)
     Route: 065
  5. PANITUMUMAB [Suspect]
     Active Substance: PANITUMUMAB
     Indication: RECTOSIGMOID CANCER
     Dosage: UNK, CYCLICAL
     Route: 065
  6. PANITUMUMAB [Suspect]
     Active Substance: PANITUMUMAB
     Indication: RECTAL ADENOCARCINOMA
     Dosage: 41, CYCLE (SUBSEQUENTLY ONLY 12 CYCLES OF MONOTHERAPY)
  7. BELOGENT [Suspect]
     Active Substance: BETAMETHASONE DIPROPIONATE\GENTAMICIN SULFATE
     Indication: SKIN REACTION
     Dosage: UNK
     Route: 065
  8. FLUOROURACIL. [Suspect]
     Active Substance: FLUOROURACIL
     Indication: RECTOSIGMOID CANCER
     Dosage: UNK (END DATE - AFTER 41 CYCLES)
  9. FLUOROURACIL. [Suspect]
     Active Substance: FLUOROURACIL
     Indication: ADENOCARCINOMA OF COLON
     Dosage: 41 CYCLICAL
  10. ROZEX (METRONIDAZOLE) [Concomitant]
     Active Substance: METRONIDAZOLE
     Indication: SKIN REACTION
     Dosage: UNK
     Route: 065
  11. DOXYCYCLINE. [Concomitant]
     Active Substance: DOXYCYCLINE
     Indication: RECTOSIGMOID CANCER
     Dosage: UNK
     Route: 065
  12. OXALIPLATIN. [Suspect]
     Active Substance: OXALIPLATIN
     Indication: RECTAL ADENOCARCINOMA
     Dosage: UNK, CYCLIC (REDUCED BY 50%)UNK
     Route: 065
  13. PANITUMUMAB [Suspect]
     Active Substance: PANITUMUMAB
     Indication: ADENOCARCINOMA OF COLON
     Dosage: FOLFOX REGIMEN + PANITUMUAB
     Route: 065
  14. CALCIUM FOLINATE [Suspect]
     Active Substance: LEUCOVORIN CALCIUM
     Indication: RECTOSIGMOID CANCER
     Dosage: UNK, CYCLE
     Route: 065
  15. FLUOROURACIL. [Suspect]
     Active Substance: FLUOROURACIL
     Dosage: UNK
     Route: 065
  16. HEPARIN [Concomitant]
     Active Substance: HEPARIN SODIUM
     Indication: PULMONARY EMBOLISM
     Dosage: LOW MOLECULAR WEIGHT
     Route: 065
  17. OXALIPLATIN. [Suspect]
     Active Substance: OXALIPLATIN
     Dosage: 36 CYCLES IN MFOLFOX REGIMEN
     Route: 042
  18. OXALIPLATIN. [Suspect]
     Active Substance: OXALIPLATIN
     Indication: RECTOSIGMOID CANCER
     Dosage: UNK (AFTER 36 CYCLES)
     Route: 065
  19. FOLINIC ACID [Suspect]
     Active Substance: LEUCOVORIN
     Indication: ADENOCARCINOMA OF COLON
     Dosage: UNK
     Route: 065
  20. CALCIUM FOLINATE [Suspect]
     Active Substance: LEUCOVORIN CALCIUM
     Dosage: 41 CYCLES IN MFOLFOX REGIMEN
     Route: 042
  21. MAGNESIUM [Concomitant]
     Active Substance: MAGNESIUM
     Indication: RECTOSIGMOID CANCER
     Dosage: UNK
     Route: 065

REACTIONS (11)
  - Erythema [Recovered/Resolved]
  - Skin necrosis [Recovered/Resolved]
  - Therapeutic product effect incomplete [Unknown]
  - Skin reaction [Recovered/Resolved]
  - Skin toxicity [Unknown]
  - Pulmonary embolism [Unknown]
  - Neutropenia [Unknown]
  - Abdominal hernia repair [Unknown]
  - Drug intolerance [Recovered/Resolved]
  - Hypomagnesaemia [Unknown]
  - Flushing [Recovered/Resolved]

NARRATIVE: CASE EVENT DATE: 2019
